FAERS Safety Report 7059799-0 (Version None)
Quarter: 2010Q4

REPORT INFORMATION
  Report Type: 
  Country: None (occurrence: None)
  Receive Date: 20101025
  Receipt Date: 20101013
  Transmission Date: 20110411
  Serious: Yes (Death, Life-Threatening, Hospitalization)
  Sender: FDA-Public Use
  Company Number: FR-PFIZER INC-2010130276

PATIENT
  Age: 57 Year
  Sex: Male
  Weight: 73 kg

DRUGS (1)
  1. SUTENT [Suspect]
     Indication: RENAL CELL CARCINOMA
     Dosage: 50 MG, 1X/DAY
     Dates: start: 20100915, end: 20100929

REACTIONS (2)
  - HAEMORRHAGIC STROKE [None]
  - HYPERTENSION [None]
